FAERS Safety Report 14077291 (Version 2)
Quarter: 2017Q4

REPORT INFORMATION
  Report Type: Spontaneous
  Country: HK (occurrence: HK)
  Receive Date: 20171012
  Receipt Date: 20171103
  Transmission Date: 20180321
  Serious: Yes (Hospitalization, Other)
  Sender: FDA-Public Use
  Company Number: HK-ROCHE-2001921

PATIENT
  Age: 56 Year
  Sex: Male

DRUGS (1)
  1. TECENTRIQ [Suspect]
     Active Substance: ATEZOLIZUMAB
     Indication: BLADDER CANCER
     Route: 042
     Dates: start: 20170913, end: 20170928

REACTIONS (2)
  - Liver disorder [Recovered/Resolved]
  - Hepatitis [Unknown]

NARRATIVE: CASE EVENT DATE: 20170915
